FAERS Safety Report 13925782 (Version 5)
Quarter: 2018Q3

REPORT INFORMATION
  Report Type: Spontaneous
  Country: RO (occurrence: RO)
  Receive Date: 20170831
  Receipt Date: 20180913
  Transmission Date: 20181010
  Serious: Yes (Death, Hospitalization)
  Sender: FDA-Public Use
  Company Number: RO-NAPPMUNDI-GBR-2017-0048272

PATIENT
  Age: 53 Year
  Sex: Male
  Weight: 50 kg

DRUGS (2)
  1. CETUXIMAB. [Concomitant]
     Active Substance: CETUXIMAB
     Indication: SQUAMOUS CELL CARCINOMA OF HEAD AND NECK
     Dosage: 622.4 MG, UNK
     Route: 042
     Dates: start: 20170726, end: 20170726
  2. OXYCODONE HYDROCHLORIDE. [Suspect]
     Active Substance: OXYCODONE HYDROCHLORIDE
     Indication: PAIN
     Dosage: 20 MG, TID
     Route: 048
     Dates: start: 20170705

REACTIONS (1)
  - Coma [Fatal]

NARRATIVE: CASE EVENT DATE: 20170728
